FAERS Safety Report 4668948-0 (Version None)
Quarter: 2005Q2

REPORT INFORMATION
  Report Type: 
  Country: None (occurrence: None)
  Receive Date: 20050523
  Receipt Date: 20050421
  Transmission Date: 20051028
  Serious: Yes (Death, Life-Threatening, Hospitalization, Disabling)
  Sender: FDA-Public Use
  Company Number: US-GLAXOSMITHKLINE-A0555404A

PATIENT
  Age: 46 Year
  Sex: Female
  Weight: 65.5 kg

DRUGS (6)
  1. WELLBUTRIN [Suspect]
     Indication: MAJOR DEPRESSION
     Dosage: 150MG PER DAY
     Route: 065
     Dates: start: 20040901
  2. TYLENOL (CAPLET) [Suspect]
     Route: 065
  3. ALCOHOL [Suspect]
     Route: 065
  4. NEXIUM [Concomitant]
  5. CELEBREX [Concomitant]
  6. LIPITOR [Concomitant]

REACTIONS (12)
  - COMPLETED SUICIDE [None]
  - COUGH [None]
  - DIARRHOEA [None]
  - DYSPNOEA [None]
  - HEADACHE [None]
  - HEPATIC FAILURE [None]
  - INSOMNIA [None]
  - METABOLIC ACIDOSIS [None]
  - OVERDOSE [None]
  - PNEUMONIA [None]
  - PNEUMONIA ASPIRATION [None]
  - VOMITING [None]
